FAERS Safety Report 15128041 (Version 1)
Quarter: 2018Q3

REPORT INFORMATION
  Report Type: Report from Study
  Country: GB (occurrence: GB)
  Receive Date: 20180710
  Receipt Date: 20180710
  Transmission Date: 20181010
  Serious: Yes (Hospitalization)
  Sender: FDA-Public Use
  Company Number: GB-BRISTOL-MYERS SQUIBB COMPANY-BMS-2018-061564

PATIENT
  Sex: Female

DRUGS (3)
  1. OMEPRAZOL                          /00661201/ [Suspect]
     Active Substance: OMEPRAZOLE
     Indication: GASTRIC DISORDER
     Route: 065
  2. ABATACEPT [Suspect]
     Active Substance: ABATACEPT
     Indication: PSORIATIC ARTHROPATHY
     Dosage: 125 MG, QWK
     Route: 058
     Dates: start: 20171003
  3. ADCAL                              /00056901/ [Suspect]
     Active Substance: CARBAZOCHROME
     Indication: BONE DISORDER
     Route: 065

REACTIONS (3)
  - Malaise [Unknown]
  - Pyrexia [Unknown]
  - Gastrointestinal infection [Unknown]
